FAERS Safety Report 25824521 (Version 1)
Quarter: 2025Q3

REPORT INFORMATION
  Report Type: Spontaneous
  Country: CN (occurrence: CN)
  Receive Date: 20250919
  Receipt Date: 20250919
  Transmission Date: 20251021
  Serious: Yes (Other)
  Sender: PFIZER
  Company Number: CN-PFIZER INC-PV202500112144

PATIENT
  Age: 43 Year
  Sex: Male

DRUGS (1)
  1. XYNTHA [Suspect]
     Active Substance: MOROCTOCOG ALFA
     Indication: Haemophilia

REACTIONS (4)
  - Knee arthroplasty [Unknown]
  - Haemarthrosis [Unknown]
  - Joint effusion [Unknown]
  - Arthrofibrosis [Unknown]
